FAERS Safety Report 10024130 (Version 1)
Quarter: 2014Q1

REPORT INFORMATION
  Report Type: Spontaneous
  Country: US (occurrence: US)
  Receive Date: 20140320
  Receipt Date: 20140320
  Transmission Date: 20141002
  Serious: No
  Sender: FDA-Public Use
  Company Number: US-PFIZER INC-2014077952

PATIENT
  Sex: Female

DRUGS (9)
  1. FELDENE [Suspect]
     Dosage: UNK
  2. METHOTREXATE SODIUM [Suspect]
     Dosage: UNK
  3. PREDNISONE [Suspect]
     Dosage: UNK
  4. HYDROXYCHLOROQUINE [Suspect]
     Dosage: UNK
  5. ULTRAM [Suspect]
     Dosage: UNK
  6. ARAVA [Suspect]
  7. HUMIRA [Suspect]
  8. ORENCIA [Suspect]
  9. SIMPONI [Suspect]

REACTIONS (1)
  - Drug hypersensitivity [Unknown]
